FAERS Safety Report 4793870-9 (Version None)
Quarter: 2005Q4

REPORT INFORMATION
  Report Type: 
  Country: None (occurrence: None)
  Receive Date: 20051011
  Receipt Date: 20050920
  Transmission Date: 20060501
  Serious: Yes (Disabling)
  Sender: FDA-Public Use
  Company Number: 2005UW14638

PATIENT
  Age: 74 Year
  Sex: Female

DRUGS (9)
  1. FASLODEX [Suspect]
     Indication: BREAST CANCER
     Route: 030
     Dates: start: 20050818, end: 20050818
  2. CELECOXIB [Concomitant]
     Indication: PAIN
     Route: 048
     Dates: start: 20041201
  3. HYDROMORP CONTIN [Concomitant]
     Indication: PAIN
     Route: 048
     Dates: start: 20050201
  4. HYDROMORPHONE [Concomitant]
     Indication: PAIN
     Route: 048
     Dates: start: 20050201
  5. DILTIAZEM HCL [Concomitant]
     Indication: HYPERTENSION
     Route: 048
  6. SERTRALINE HCL [Concomitant]
     Indication: DEPRESSION
     Route: 048
  7. RANITIDINE [Concomitant]
     Indication: PROPHYLAXIS
     Route: 048
  8. SENOKOT [Concomitant]
     Indication: CONSTIPATION
     Route: 048
  9. LORAZEPAM [Concomitant]
     Indication: ANXIETY
     Route: 060

REACTIONS (4)
  - HOT FLUSH [None]
  - NIGHT SWEATS [None]
  - PHARYNGEAL ULCERATION [None]
  - PHARYNGITIS [None]
